FAERS Safety Report 5593359-3 (Version None)
Quarter: 2008Q1

REPORT INFORMATION
  Report Type: 
  Country: None (occurrence: None)
  Receive Date: 20080116
  Receipt Date: 20080109
  Transmission Date: 20080703
  Serious: Yes (Other)
  Sender: FDA-Public Use
  Company Number: JP-BAYER-200810033BYL

PATIENT
  Age: 71 Year
  Sex: Male

DRUGS (2)
  1. ASPIRIN [Suspect]
     Indication: ANTIPLATELET THERAPY
     Route: 048
     Dates: start: 20050101
  2. PANALDINE [Suspect]
     Indication: ANTIPLATELET THERAPY
     Route: 048
     Dates: start: 20050101

REACTIONS (2)
  - ANAEMIA [None]
  - OCCULT BLOOD [None]
